FAERS Safety Report 7763623-8 (Version None)
Quarter: 2011Q3

REPORT INFORMATION
  Report Type: 
  Country: None (occurrence: None)
  Receive Date: 20110921
  Receipt Date: 20090424
  Transmission Date: 20111222
  Serious: Yes (Hospitalization)
  Sender: FDA-Public Use
  Company Number: DE-RANBAXY-2009US-46683

PATIENT
  Age: 15 Year
  Sex: Female
  Weight: 75 kg

DRUGS (9)
  1. PANTOPRAZOLE [Suspect]
     Indication: PRODUCT USED FOR UNKNOWN INDICATION
     Dosage: UNK
     Route: 048
     Dates: start: 20081218
  2. MELOXICAM [Suspect]
     Indication: PAIN
     Dosage: UNK
     Route: 048
  3. VOLTAREN [Suspect]
     Indication: PAIN
     Dosage: UNK
     Route: 048
     Dates: start: 20081218
  4. GINKO BILOBA [Suspect]
     Indication: PRODUCT USED FOR UNKNOWN INDICATION
     Dosage: 1 DF, PRN
     Route: 048
     Dates: start: 20080901, end: 20081219
  5. SUFENTANIL CITRATE [Suspect]
     Indication: PRODUCT USED FOR UNKNOWN INDICATION
     Dosage: UNK
     Route: 042
     Dates: start: 20081218
  6. ACETAMINOPHEN [Suspect]
     Indication: PAIN
     Dosage: UNK MG, UNK
     Route: 048
     Dates: start: 20090118
  7. METHYLATROPINE NITRATE [Suspect]
     Indication: PRODUCT USED FOR UNKNOWN INDICATION
     Dosage: UNK , UNK
     Route: 042
     Dates: start: 20081218
  8. SEVOFLURANE [Suspect]
     Indication: PRODUCT USED FOR UNKNOWN INDICATION
     Dosage: 11 DOSAGE FORMS
     Route: 045
     Dates: start: 20081218
  9. GLYCOSAMINOGLYCANES [Concomitant]
     Dosage: 1 DF, UNK
     Route: 048

REACTIONS (2)
  - RENAL FAILURE ACUTE [None]
  - TUBULOINTERSTITIAL NEPHRITIS [None]
